FAERS Safety Report 4457061-3 (Version None)
Quarter: 2004Q3

REPORT INFORMATION
  Report Type: 
  Country: None (occurrence: None)
  Receive Date: 20040830
  Receipt Date: 20040413
  Transmission Date: 20050211
  Serious: No
  Sender: FDA-Public Use
  Company Number: 205825

PATIENT
  Age: 56 Year
  Sex: Female
  Weight: 67.1 kg

DRUGS (5)
  1. XOLAIR [Suspect]
     Indication: ASTHMA
     Dosage: 225 MG, Q2W, SUBCUTANEOUS
     Route: 058
     Dates: start: 20040408, end: 20040408
  2. PULMICORT [Concomitant]
  3. PROVENTIL (ALBUTEROL, ALBUTEROL SULFATE) [Concomitant]
  4. ASTELIN [Concomitant]
  5. FORADIL [Concomitant]

REACTIONS (3)
  - COUGH [None]
  - STOMATITIS [None]
  - WHEEZING [None]
